FAERS Safety Report 5321141-0 (Version None)
Quarter: 2007Q2

REPORT INFORMATION
  Report Type: 
  Country: None (occurrence: None)
  Receive Date: 20070510
  Receipt Date: 20070507
  Transmission Date: 20071010
  Serious: Yes (Other)
  Sender: FDA-Public Use
  Company Number: JP-BRISTOL-MYERS SQUIBB COMPANY-13773338

PATIENT
  Age: 42 Year
  Sex: Male

DRUGS (7)
  1. PARAPLATIN [Suspect]
     Indication: EXTRANODAL NK/T-CELL LYMPHOMA, NASAL TYPE
     Route: 042
  2. IFOMIDE [Suspect]
     Route: 041
  3. CYCLOPHOSPHAMIDE [Suspect]
  4. DOXORUBICIN HCL [Suspect]
  5. VINCRISTINE SULFATE [Suspect]
  6. LASTET [Suspect]
     Route: 041
  7. DEXAMETHASONE SODIUM PHOSPHATE [Suspect]
     Route: 042

REACTIONS (2)
  - MUCOSAL INFLAMMATION [None]
  - PANCYTOPENIA [None]
